FAERS Safety Report 7241188-7 (Version None)
Quarter: 2011Q1

REPORT INFORMATION
  Report Type: 
  Country: None (occurrence: None)
  Receive Date: 20110124
  Receipt Date: 20110113
  Transmission Date: 20110831
  Serious: Yes (Hospitalization)
  Sender: FDA-Public Use
  Company Number: US-ASTRAZENECA-2011SE02296

PATIENT
  Sex: Female

DRUGS (7)
  1. LYRICA [Concomitant]
  2. MEDICATION FOR THYROID [Concomitant]
     Indication: THYROID DISORDER
  3. LIPITOR [Concomitant]
  4. WARFARIN [Concomitant]
  5. NEXIUM [Suspect]
     Route: 048
  6. CRESTOR [Suspect]
     Route: 048
     Dates: start: 20060101
  7. NEXIUM [Suspect]
     Route: 048

REACTIONS (2)
  - DRUG INEFFECTIVE [None]
  - COLON CANCER [None]
